FAERS Safety Report 11283011 (Version 1)
Quarter: 2015Q3

REPORT INFORMATION
  Report Type: Spontaneous
  Country: AU (occurrence: None)
  Receive Date: 20150716
  Receipt Date: 20150716
  Transmission Date: 20151125
  Serious: Yes (Other)
  Sender: FDA-Public Use
  Company Number: 2015COV00135

PATIENT
  Age: 63 Year
  Sex: Male

DRUGS (7)
  1. DIGOXIN (DIGOXIN) UNKNOWN [Suspect]
     Active Substance: DIGOXIN
     Route: 042
  2. AMIODARONE (AMIODARONE) [Suspect]
     Active Substance: AMIODARONE
     Indication: SUPRAVENTRICULAR TACHYCARDIA
     Route: 042
  3. ADENOSINE (ADENOSINE) [Suspect]
     Active Substance: ADENOSINE
     Indication: TACHYCARDIA
     Dosage: 18 MG, TWICE
     Route: 042
  4. SUPPLEMENTAL OXYGEN (OXYGEN) INHALATION GAS [Concomitant]
  5. ADENOSINE (ADENOSINE) [Suspect]
     Active Substance: ADENOSINE
     Indication: SUPRAVENTRICULAR TACHYCARDIA
     Dosage: 18 MG, TWICE
     Route: 042
  6. SOTALOL (SOTALOL) [Suspect]
     Active Substance: SOTALOL
     Route: 048
  7. VERAPAMIL [Suspect]
     Active Substance: VERAPAMIL HYDROCHLORIDE
     Indication: SUPRAVENTRICULAR TACHYCARDIA
     Route: 042

REACTIONS (10)
  - Drug interaction [None]
  - Ischaemic hepatitis [None]
  - Cardiogenic shock [None]
  - Acute kidney injury [None]
  - Mitral valve incompetence [None]
  - Multi-organ disorder [None]
  - Tachycardia induced cardiomyopathy [None]
  - Left ventricular failure [None]
  - Acute pulmonary oedema [None]
  - Supraventricular tachycardia [None]
